FAERS Safety Report 11219960 (Version 1)
Quarter: 2015Q2

REPORT INFORMATION
  Report Type: Spontaneous
  Country: US (occurrence: None)
  Receive Date: 20150624
  Receipt Date: 20150624
  Transmission Date: 20150821
  Serious: No
  Sender: FDA-Public Use
  Company Number: None

PATIENT
  Age: 35 Year
  Sex: Female
  Weight: 52.16 kg

DRUGS (1)
  1. CLOBETASOL PROPIONATE TOPICAL 0.05% FOUGERA [Suspect]
     Active Substance: CLOBETASOL PROPIONATE
     Indication: PSORIASIS
     Dosage: 50ML  AS NEEDED  APPLIED TO A SURFACE, USUALLY THE SKIN
     Route: 061
     Dates: start: 20150508, end: 20150509

REACTIONS (5)
  - Paraesthesia [None]
  - Product substitution issue [None]
  - Somnolence [None]
  - Dizziness [None]
  - Hypoaesthesia [None]

NARRATIVE: CASE EVENT DATE: 20150508
